FAERS Safety Report 7397064-2 (Version None)
Quarter: 2011Q2

REPORT INFORMATION
  Report Type: 
  Country: None (occurrence: None)
  Receive Date: 20110406
  Receipt Date: 20110329
  Transmission Date: 20111010
  Serious: Yes (Hospitalization)
  Sender: FDA-Public Use
  Company Number: A0773151A

PATIENT
  Age: 68 Year
  Sex: Male
  Weight: 75 kg

DRUGS (18)
  1. VYTORIN [Concomitant]
  2. NITROSTAT [Concomitant]
     Dates: start: 20000101, end: 20040101
  3. AVANDIA [Suspect]
     Indication: DIABETES MELLITUS
     Dosage: 8MG PER DAY
     Route: 048
     Dates: start: 20010402, end: 20080515
  4. ZOLOFT [Concomitant]
  5. ALLEGRA [Concomitant]
  6. DILTIAZEM HCL [Concomitant]
  7. GLUCOPHAGE [Concomitant]
  8. METFORMIN [Concomitant]
  9. INSULIN [Concomitant]
  10. GLYBURIDE [Concomitant]
  11. ZOCOR [Concomitant]
  12. SIMVASTATIN [Concomitant]
  13. LEXAPRO [Concomitant]
  14. SULINDAC [Concomitant]
  15. BENAZEPRIL HYDROCHLORIDE [Concomitant]
  16. CELEBREX [Concomitant]
  17. NAPROXEN [Concomitant]
  18. DIOVAN [Concomitant]

REACTIONS (2)
  - CEREBROVASCULAR ACCIDENT [None]
  - MYOCARDIAL INFARCTION [None]
